FAERS Safety Report 8348359-7 (Version None)
Quarter: 2012Q2

REPORT INFORMATION
  Report Type: 
  Country: None (occurrence: None)
  Receive Date: 20120509
  Receipt Date: 20120504
  Transmission Date: 20120825
  Serious: Yes (Hospitalization)
  Sender: FDA-Public Use
  Company Number: GB-ROCHE-1048266

PATIENT
  Sex: Male

DRUGS (7)
  1. LUCENTIS [Suspect]
     Indication: AGE-RELATED MACULAR DEGENERATION
     Route: 050
     Dates: start: 20110129
  2. SIMVASTATIN [Concomitant]
  3. NITROGLYCERIN [Concomitant]
     Indication: MYOCARDIAL ISCHAEMIA
  4. ATENOLOL [Concomitant]
     Indication: HYPERTENSION
  5. BENDROFLUMETHIAZID [Concomitant]
  6. ASPIRIN [Concomitant]
  7. NICORANDIL [Concomitant]

REACTIONS (1)
  - ANGINA PECTORIS [None]
